FAERS Safety Report 11063252 (Version 1)
Quarter: 2015Q2

REPORT INFORMATION
  Report Type: Spontaneous
  Country: US (occurrence: US)
  Receive Date: 20150424
  Receipt Date: 20150424
  Transmission Date: 20150821
  Serious: No
  Sender: FDA-Public Use
  Company Number: US-ALKERMES INC.-ALK-2014-003556

PATIENT

DRUGS (1)
  1. VIVITROL [Suspect]
     Active Substance: NALTREXONE
     Indication: DRUG DEPENDENCE
     Dosage: 380 MG, QMO
     Route: 030
     Dates: start: 20140722

REACTIONS (9)
  - Asthenia [Unknown]
  - Attention deficit/hyperactivity disorder [Unknown]
  - Treatment noncompliance [Unknown]
  - Fatigue [Unknown]
  - Somnolence [Unknown]
  - Apathy [Unknown]
  - Mood altered [Unknown]
  - Social avoidant behaviour [Unknown]
  - Depression [Unknown]

NARRATIVE: CASE EVENT DATE: 201407
